FAERS Safety Report 9087963 (Version 2)
Quarter: 2013Q4

REPORT INFORMATION
  Report Type: Spontaneous
  Country: FR (occurrence: FR)
  Receive Date: 20130218
  Receipt Date: 20131023
  Transmission Date: 20140711
  Serious: Yes (Life-Threatening, Hospitalization)
  Sender: FDA-Public Use
  Company Number: PHHY2013FR011838

PATIENT
  Age: 66 Year
  Sex: Female

DRUGS (14)
  1. ANAFRANIL [Suspect]
     Indication: MAJOR DEPRESSION
     Dosage: UNK UKN, UNK
     Route: 042
     Dates: start: 20121223, end: 20121226
  2. ANAFRANIL [Suspect]
     Dosage: UNK UKN, UNK
     Dates: start: 20130104
  3. LOSARTAN [Suspect]
     Dosage: 100 MG, DAILY
     Route: 048
     Dates: start: 2010
  4. ATENOLOL [Suspect]
     Dosage: 50 MG, DAILY
     Route: 048
     Dates: start: 2010
  5. ATENOLOL [Suspect]
     Dosage: INCREASED DOSE
     Dates: start: 20130104
  6. DEPAKINE CHRONO [Suspect]
     Dosage: 500 MG DAILY
     Route: 048
     Dates: start: 2010
  7. MYSOLINE [Suspect]
     Dosage: 250 MG, DAILY
     Route: 048
     Dates: start: 201007
  8. SERESTA [Suspect]
     Dosage: 25 MG, DAILY
     Route: 048
     Dates: start: 2010
  9. AMLOR [Suspect]
     Dosage: 10 MG, DAILY
     Route: 048
     Dates: start: 2010, end: 20121226
  10. AMLOR [Suspect]
     Dosage: INCREASED DOSES
  11. RISPERDAL [Suspect]
     Dosage: 2 MG, DAILY
     Route: 048
     Dates: end: 20121227
  12. RISPERDAL [Suspect]
     Dosage: UNK UKN, UNK
     Dates: start: 20120104
  13. LEVOTHYROX [Suspect]
     Dosage: 75 UG, DAILY
     Route: 048
     Dates: start: 2010
  14. KARDEGIC [Suspect]
     Dosage: 75 MG, DAILY
     Route: 048
     Dates: start: 2010

REACTIONS (2)
  - Posterior reversible encephalopathy syndrome [Recovered/Resolved]
  - Convulsion [Recovered/Resolved]
